FAERS Safety Report 5422433-7 (Version None)
Quarter: 2007Q3

REPORT INFORMATION
  Report Type: 
  Country: None (occurrence: None)
  Receive Date: 20070822
  Receipt Date: 20070817
  Transmission Date: 20080115
  Serious: Yes (Hospitalization)
  Sender: FDA-Public Use
  Company Number: B0483991A

PATIENT
  Age: 93 Year
  Sex: Female

DRUGS (5)
  1. AUGMENTIN '125' [Suspect]
     Route: 048
     Dates: start: 20070301, end: 20070312
  2. IRBESARTAN [Concomitant]
     Dosage: 300MG PER DAY
     Route: 048
     Dates: end: 20070301
  3. LERCAN [Concomitant]
     Dosage: 2UNIT PER DAY
     Route: 048
     Dates: end: 20070301
  4. LASIX [Concomitant]
     Dosage: 20MG PER DAY
     Route: 048
     Dates: end: 20070301
  5. ALUMINUM HYDROXIDE AND MAGNESIUM TRISILICATE [Concomitant]
     Route: 048
     Dates: start: 20070301

REACTIONS (9)
  - DEHYDRATION [None]
  - DIARRHOEA [None]
  - DIZZINESS [None]
  - GENERAL PHYSICAL HEALTH DETERIORATION [None]
  - HYPERKALAEMIA [None]
  - HYPERTENSION [None]
  - HYPONATRAEMIA [None]
  - INFLAMMATION [None]
  - ORTHOSTATIC HYPOTENSION [None]
